FAERS Safety Report 11568854 (Version 2)
Quarter: 2015Q4

REPORT INFORMATION
  Report Type: Spontaneous
  Country: DE (occurrence: DE)
  Receive Date: 20150929
  Receipt Date: 20151001
  Transmission Date: 20160304
  Serious: Yes (Hospitalization, Other)
  Sender: FDA-Public Use
  Company Number: DE-BAYER-2015-388720

PATIENT
  Age: 34 Year
  Sex: Female
  Weight: 97 kg

DRUGS (3)
  1. MAXIM [Suspect]
     Active Substance: DIENOGEST\ETHINYL ESTRADIOL
     Indication: UTERINE LEIOMYOMA
     Dosage: 1 DF, QD
     Route: 048
     Dates: start: 201505, end: 20150717
  2. CERAZETTE [Suspect]
     Active Substance: DESOGESTREL
     Indication: ORAL CONTRACEPTION
     Dosage: 1 DF, QD
     Route: 048
     Dates: start: 20150717, end: 20150727
  3. YAZ [Suspect]
     Active Substance: DROSPIRENONE\ETHINYL ESTRADIOL
     Dosage: 1 DF, QD
     Route: 048
     Dates: start: 2007, end: 201505

REACTIONS (9)
  - Intracranial pressure increased [Recovered/Resolved]
  - Uterine leiomyoma [None]
  - Off label use [None]
  - Vaginal haemorrhage [None]
  - Polymenorrhoea [None]
  - Uterine leiomyoma [None]
  - Breast pain [None]
  - Headache [None]
  - Benign intracranial hypertension [Recovered/Resolved]

NARRATIVE: CASE EVENT DATE: 2009
